FAERS Safety Report 7782413-3 (Version None)
Quarter: 2011Q3

REPORT INFORMATION
  Report Type: 
  Country: None (occurrence: None)
  Receive Date: 20110927
  Receipt Date: 20091120
  Transmission Date: 20111222
  Serious: Yes (Hospitalization)
  Sender: FDA-Public Use
  Company Number: PHHY2010TW15438

PATIENT
  Sex: Male

DRUGS (4)
  1. GLEEVEC [Suspect]
     Dosage: 8 PILLS PER DAY
  2. GLEEVEC [Suspect]
     Indication: GASTROINTESTINAL STROMAL TUMOUR
     Dosage: 800 MG, UNK
     Route: 048
     Dates: start: 20010101
  3. GLEEVEC [Suspect]
     Dosage: 4 PILLS PER DAY
  4. GLEEVEC [Suspect]
     Dosage: 300 MG, UNK
     Route: 048

REACTIONS (3)
  - DISCOMFORT [None]
  - PRURITUS [None]
  - RASH [None]
